FAERS Safety Report 4264881-7 (Version None)
Quarter: 2004Q1

REPORT INFORMATION
  Report Type: 
  Country: None (occurrence: None)
  Receive Date: 20040105
  Receipt Date: 20031222
  Transmission Date: 20041129
  Serious: Yes (Hospitalization)
  Sender: FDA-Public Use
  Company Number: 200313816EU

PATIENT
  Age: 49 Year
  Sex: Female

DRUGS (3)
  1. RIFATER [Suspect]
     Indication: PULMONARY TUBERCULOSIS
     Dosage: 6 U/DAY PO
     Route: 048
     Dates: start: 20031101, end: 20031122
  2. ETHAMBUTOL DIHYDROCHLORIDE (ETAPIAM) [Concomitant]
  3. ALLOPURINOL [Concomitant]

REACTIONS (3)
  - DERMATITIS [None]
  - PANCREATITIS ACUTE [None]
  - URTICARIA [None]
